FAERS Safety Report 20817220 (Version 2)
Quarter: 2022Q3

REPORT INFORMATION
  Report Type: Report from Study
  Country: None (occurrence: CA)
  Receive Date: 20220512
  Receipt Date: 20220712
  Transmission Date: 20221027
  Serious: Yes (Hospitalization)
  Sender: FDA-Public Use
  Company Number: CA-AKCEA THERAPEUTICS, INC.-2022IS003414

PATIENT
  Age: 67 Year
  Sex: Female

DRUGS (7)
  1. TEGSEDI [Suspect]
     Active Substance: INOTERSEN SODIUM
     Indication: Hereditary neuropathic amyloidosis
     Route: 058
  2. DEVICE [Suspect]
     Active Substance: DEVICE
  3. CYMBALTA [Concomitant]
     Active Substance: DULOXETINE HYDROCHLORIDE
     Route: 065
  4. LYRICA [Concomitant]
     Active Substance: PREGABALIN
     Route: 065
  5. PANTOPRAZOLE [Concomitant]
     Active Substance: PANTOPRAZOLE
     Route: 065
  6. SYNTHROID [Concomitant]
     Active Substance: LEVOTHYROXINE SODIUM
     Route: 065
  7. TYLENOL [Concomitant]
     Active Substance: ACETAMINOPHEN
     Route: 065

REACTIONS (38)
  - Autoimmune haemolytic anaemia [Unknown]
  - Blood bilirubin increased [Unknown]
  - Blood pressure decreased [Unknown]
  - Choking [Unknown]
  - Cholelithiasis [Unknown]
  - Contrast media reaction [Unknown]
  - Cough [Unknown]
  - Decreased appetite [Unknown]
  - Dyspepsia [Unknown]
  - Dyspnoea [Unknown]
  - Emotional disorder [Unknown]
  - Fatigue [Unknown]
  - Feeling abnormal [Unknown]
  - Food refusal [Unknown]
  - Gastrointestinal pain [Unknown]
  - Haemoglobin decreased [Unknown]
  - Haemolysis [Unknown]
  - Hepatic enzyme increased [Unknown]
  - Hypogeusia [Unknown]
  - Illness [Unknown]
  - Insomnia [Unknown]
  - Jaundice [Unknown]
  - Malaise [Unknown]
  - Mental disorder [Unknown]
  - Nausea [Unknown]
  - Ocular icterus [Unknown]
  - Pain [Unknown]
  - Pallor [Unknown]
  - Pruritus [Unknown]
  - Urinary tract infection [Unknown]
  - Urticaria [Unknown]
  - Abdominal discomfort [Unknown]
  - Aspartate aminotransferase increased [Unknown]
  - Depressed mood [Unknown]
  - Dry skin [Unknown]
  - Gallbladder disorder [Unknown]
  - Neuropathy peripheral [Unknown]
  - Gastrointestinal disorder [Unknown]
